FAERS Safety Report 20923992 (Version 4)
Quarter: 2023Q2

REPORT INFORMATION
  Report Type: Spontaneous
  Country: US (occurrence: US)
  Receive Date: 20220607
  Receipt Date: 20230405
  Transmission Date: 20230722
  Serious: Yes (Other)
  Sender: FDA-Public Use
  Company Number: US-PFIZER INC-202200764909

PATIENT
  Age: 3 Year
  Sex: Female
  Weight: 15 kg

DRUGS (21)
  1. CARBOPLATIN [Suspect]
     Active Substance: CARBOPLATIN
     Indication: Cervix neoplasm
     Dosage: 250 MG/M2 (DAYS 1-3)
     Route: 042
     Dates: start: 20110728, end: 201107
  2. CARBOPLATIN [Suspect]
     Active Substance: CARBOPLATIN
     Indication: Ganglioneuroma
     Dosage: 250 MG/M2 (DAYS 1-3)
     Route: 042
     Dates: start: 20110822, end: 201108
  3. CARBOPLATIN [Suspect]
     Active Substance: CARBOPLATIN
     Indication: Neoplasm
     Dosage: 250 MG/M2 (DAYS 1-3)
     Route: 042
     Dates: start: 20110919, end: 201109
  4. CARBOPLATIN [Suspect]
     Active Substance: CARBOPLATIN
     Dosage: 250 MG/M2 (DAYS 1-3)
     Route: 042
     Dates: start: 20111024, end: 201110
  5. CARBOPLATIN [Suspect]
     Active Substance: CARBOPLATIN
     Dosage: 250 MG/M2 (DAYS 1-3)
     Route: 042
     Dates: start: 20111117, end: 201111
  6. CARBOPLATIN [Suspect]
     Active Substance: CARBOPLATIN
     Dosage: 250 MG/M2 (DAYS 1-3)
     Route: 042
     Dates: start: 20111219, end: 201112
  7. CARBOPLATIN [Suspect]
     Active Substance: CARBOPLATIN
     Dosage: 250 MG/M2 (DAYS 1-3)
     Route: 042
     Dates: start: 20120116, end: 201201
  8. TOPOTECAN HYDROCHLORIDE [Suspect]
     Active Substance: TOPOTECAN HYDROCHLORIDE
     Indication: Cervix neoplasm
     Dosage: 0.5 MG/M2 (DAYS 1-3)
     Route: 042
     Dates: start: 20110728, end: 201107
  9. TOPOTECAN HYDROCHLORIDE [Suspect]
     Active Substance: TOPOTECAN HYDROCHLORIDE
     Indication: Neoplasm
     Dosage: 0.5 MG/M2 (DAYS 1-3)
     Route: 042
     Dates: start: 20110822, end: 201108
  10. TOPOTECAN HYDROCHLORIDE [Suspect]
     Active Substance: TOPOTECAN HYDROCHLORIDE
     Indication: Ganglioneuroma
     Dosage: 0.5 MG/M2 (DAYS 1-3)
     Route: 042
     Dates: start: 20110919, end: 201109
  11. TOPOTECAN HYDROCHLORIDE [Suspect]
     Active Substance: TOPOTECAN HYDROCHLORIDE
     Dosage: 0.5 MG/M2 (DAYS 1-3)
     Route: 042
     Dates: start: 20111024, end: 201110
  12. TOPOTECAN HYDROCHLORIDE [Suspect]
     Active Substance: TOPOTECAN HYDROCHLORIDE
     Dosage: 0.5 MG/M2 (DAYS 1-3)
     Route: 042
     Dates: start: 20111117, end: 201111
  13. TOPOTECAN HYDROCHLORIDE [Suspect]
     Active Substance: TOPOTECAN HYDROCHLORIDE
     Dosage: 0.5 MG/M2 (DAYS 1-3)
     Route: 042
     Dates: start: 20111219, end: 201112
  14. TOPOTECAN HYDROCHLORIDE [Suspect]
     Active Substance: TOPOTECAN HYDROCHLORIDE
     Dosage: 0.5 MG/M2 (DAYS 1-3)
     Route: 042
     Dates: start: 20120116, end: 201201
  15. IFOSFAMIDE [Suspect]
     Active Substance: IFOSFAMIDE
     Indication: Cervix neoplasm
     Dosage: 1800 MG/M2 (DAYS 1-5)
     Route: 042
     Dates: start: 20110728, end: 201108
  16. IFOSFAMIDE [Suspect]
     Active Substance: IFOSFAMIDE
     Indication: Ganglioneuroma
     Dosage: 1800 MG/M2 (DAYS 1-5)
     Route: 042
     Dates: start: 20110822, end: 201108
  17. IFOSFAMIDE [Suspect]
     Active Substance: IFOSFAMIDE
     Indication: Neoplasm
     Dosage: 1800 MG/M2 (DAYS 1-5)
     Route: 042
     Dates: start: 20110919, end: 201109
  18. IFOSFAMIDE [Suspect]
     Active Substance: IFOSFAMIDE
     Dosage: 1800 MG/M2 (DAYS 1-5)
     Route: 042
     Dates: start: 20111024, end: 201110
  19. IFOSFAMIDE [Suspect]
     Active Substance: IFOSFAMIDE
     Dosage: 1800 MG/M2 (DAYS 1-5)
     Route: 042
     Dates: start: 20111117, end: 201111
  20. IFOSFAMIDE [Suspect]
     Active Substance: IFOSFAMIDE
     Dosage: 1800 MG/M2 (DAYS 1-5)
     Route: 042
     Dates: start: 20111219, end: 201112
  21. IFOSFAMIDE [Suspect]
     Active Substance: IFOSFAMIDE
     Dosage: 1800 MG/M2 (DAYS 1-5)
     Route: 042
     Dates: start: 20120116, end: 201201

REACTIONS (6)
  - Haematotoxicity [Unknown]
  - Mucosal inflammation [Recovered/Resolved]
  - Febrile neutropenia [Recovered/Resolved]
  - Pancytopenia [Recovered/Resolved]
  - Infection [Unknown]
  - Off label use [Unknown]

NARRATIVE: CASE EVENT DATE: 20110811
